FAERS Safety Report 20154959 (Version 1)
Quarter: 2021Q4

REPORT INFORMATION
  Report Type: Spontaneous
  Country: CN (occurrence: CN)
  Receive Date: 20211207
  Receipt Date: 20211207
  Transmission Date: 20220303
  Serious: Yes (Other)
  Sender: FDA-Public Use
  Company Number: CN-BAXTER-2021BAX038276

PATIENT
  Age: 48 Year
  Sex: Female
  Weight: 50 kg

DRUGS (10)
  1. CYCLOPHOSPHAMIDE [Suspect]
     Active Substance: CYCLOPHOSPHAMIDE
     Indication: Breast cancer stage I
     Dosage: 0.9% SODIUM CHLORIDE INJECTION 250ML + CYCLOPHOSPHAMIDE FOR INJECTION 0.8G
     Route: 041
     Dates: start: 20211103, end: 20211103
  2. CYCLOPHOSPHAMIDE [Suspect]
     Active Substance: CYCLOPHOSPHAMIDE
     Indication: HER2 positive breast cancer
  3. SODIUM CHLORIDE [Suspect]
     Active Substance: SODIUM CHLORIDE
     Indication: Medication dilution
     Dosage: 0.9% SODIUM CHLORIDE INJECTION 250ML + TRASTUZUMAB FOR INJECTION 400 MG
     Route: 041
     Dates: start: 20211103, end: 20211103
  4. SODIUM CHLORIDE [Suspect]
     Active Substance: SODIUM CHLORIDE
     Dosage: 0.9% SODIUM CHLORIDE INJECTION 250ML + CYCLOPHOSPHAMIDE FOR INJECTION 0.8G
     Route: 041
     Dates: start: 20211103, end: 20211103
  5. DOCETAXEL [Suspect]
     Active Substance: DOCETAXEL
     Indication: Breast cancer stage I
     Dosage: 0.9% SODIUM CHLORIDE INJECTION 100ML + DOCETAXEL INJECTION (TAIZHENGXIN) 20 MG
     Route: 041
     Dates: start: 20211103, end: 20211103
  6. DOCETAXEL [Suspect]
     Active Substance: DOCETAXEL
     Indication: HER2 positive breast cancer
     Dosage: 0.9% SODIUM CHLORIDE INJECTION 100ML + DOCETAXEL INJECTION (TAIZHENGXIN) 80 MG
     Route: 041
     Dates: start: 20211103, end: 20211103
  7. TRASTUZUMAB [Suspect]
     Active Substance: TRASTUZUMAB
     Indication: Breast cancer stage I
     Dosage: 0.9% SODIUM CHLORIDE INJECTION 250ML + TRASTUZUMAB FOR INJECTION 400 MG
     Route: 041
     Dates: start: 20211103, end: 20211103
  8. TRASTUZUMAB [Suspect]
     Active Substance: TRASTUZUMAB
     Indication: HER2 positive breast cancer
  9. SODIUM CHLORIDE [Suspect]
     Active Substance: SODIUM CHLORIDE
     Indication: Medication dilution
     Dosage: 0.9% SODIUM CHLORIDE INJECTION 100ML + DOCETAXEL INJECTION (TAIZHENGXIN) 20 MG
     Route: 041
     Dates: start: 20211103, end: 20211103
  10. SODIUM CHLORIDE [Suspect]
     Active Substance: SODIUM CHLORIDE
     Dosage: 0.9% SODIUM CHLORIDE INJECTION 100ML + DOCETAXEL INJECTION (TAIZHENGXIN) 80 MG
     Route: 041
     Dates: start: 20211103, end: 20211103

REACTIONS (2)
  - Agranulocytosis [Recovering/Resolving]
  - Transaminases increased [Recovering/Resolving]

NARRATIVE: CASE EVENT DATE: 20211110
